FAERS Safety Report 9465178 (Version 2)
Quarter: 2013Q3

REPORT INFORMATION
  Report Type: Report from Study
  Country: NL (occurrence: NL)
  Receive Date: 20130819
  Receipt Date: 20130912
  Transmission Date: 20140515
  Serious: Yes (Other)
  Sender: FDA-Public Use
  Company Number: NL-CELGENEUS-114-21880-13080849

PATIENT
  Age: 65 Year
  Sex: Male
  Weight: 72 kg

DRUGS (3)
  1. REVLIMID [Suspect]
     Indication: PLASMA CELL MYELOMA
     Dosage: 10 MILLIGRAM
     Route: 048
     Dates: start: 20111130
  2. REVLIMID [Suspect]
     Dosage: 10 MILLIGRAM
     Route: 048
     Dates: start: 20130718, end: 20130808
  3. PAMIDRONINE [Concomitant]
     Indication: PLASMA CELL MYELOMA
     Dosage: 90 MILLIGRAM
     Route: 048
     Dates: start: 20110131

REACTIONS (2)
  - Papilloedema [Recovering/Resolving]
  - Visual field defect [Recovering/Resolving]
